FAERS Safety Report 6806208-X (Version None)
Quarter: 2010Q2

REPORT INFORMATION
  Report Type: 
  Country: None (occurrence: None)
  Receive Date: 20100629
  Receipt Date: 20100625
  Transmission Date: 20101027
  Serious: Yes (Hospitalization, Disabling, Other)
  Sender: FDA-Public Use
  Company Number: ES-MERCK-1006ESP00036

PATIENT
  Age: 61 Year
  Sex: Female
  Weight: 68 kg

DRUGS (8)
  1. FOSAMAX PLUS D [Suspect]
     Indication: BONE DENSITY DECREASED
     Route: 048
     Dates: start: 20091020
  2. BUDESONIDE AND FORMOTEROL FUMARATE [Suspect]
     Indication: ASTHMA
     Route: 055
     Dates: start: 20100315
  3. TANEZUMAB [Suspect]
     Indication: OSTEOARTHRITIS
     Route: 042
     Dates: start: 20091001, end: 20100318
  4. NAPROXEN [Concomitant]
     Indication: PAIN
     Route: 048
     Dates: start: 20091001, end: 20100514
  5. PLACEBO (UNSPECIFIED) [Concomitant]
     Indication: PAIN
     Route: 048
     Dates: start: 20091001, end: 20100514
  6. OLMESARTAN MEDOXOMIL [Concomitant]
     Route: 065
     Dates: start: 20091020
  7. ACETAMINOPHEN [Concomitant]
     Indication: PAIN
     Route: 065
     Dates: end: 20100514
  8. PLACEBO (UNSPECIFIED) [Suspect]
     Indication: OSTEOARTHRITIS
     Route: 042
     Dates: start: 20091001, end: 20100318

REACTIONS (2)
  - ANKLE FRACTURE [None]
  - OSTEONECROSIS [None]
